FAERS Safety Report 13803290 (Version 3)
Quarter: 2017Q3

REPORT INFORMATION
  Report Type: Spontaneous
  Country: JP (occurrence: JP)
  Receive Date: 20170728
  Receipt Date: 20170831
  Transmission Date: 20171127
  Serious: Yes (Other)
  Sender: FDA-Public Use
  Company Number: JP-PFIZER INC-2017317840

PATIENT
  Age: 70 Year
  Sex: Male

DRUGS (3)
  1. KARY UNI [Concomitant]
     Active Substance: PIRENOXINE
     Indication: CATARACT
     Route: 047
  2. LATANOPROST. [Suspect]
     Active Substance: LATANOPROST
     Indication: CATARACT
     Dosage: UNK UNK, 3X/DAY
     Route: 047
  3. BETAMETHASONE. [Concomitant]
     Active Substance: BETAMETHASONE
     Indication: CATARACT
     Dosage: UNK
     Route: 047

REACTIONS (6)
  - Iritis [Recovering/Resolving]
  - Off label use [Unknown]
  - Product use in unapproved indication [Unknown]
  - Intraocular pressure increased [Recovering/Resolving]
  - Uveitis [Recovering/Resolving]
  - Corneal opacity [Recovering/Resolving]

NARRATIVE: CASE EVENT DATE: 20170703
